FAERS Safety Report 9085192 (Version 1)
Quarter: 2013Q1

REPORT INFORMATION
  Report Type: Report from Study
  Country: US (occurrence: US)
  Receive Date: 20130131
  Receipt Date: 20130131
  Transmission Date: 20140127
  Serious: No
  Sender: FDA-Public Use
  Company Number: US-ABBOTT-12P-163-0994005-00

PATIENT
  Age: 66 Year
  Sex: Female

DRUGS (19)
  1. HUMIRA [Suspect]
     Indication: RHEUMATOID ARTHRITIS
     Dates: start: 20120912
  2. NEXIUM [Concomitant]
     Indication: GASTROOESOPHAGEAL REFLUX DISEASE
     Route: 048
  3. METHOTREXATE [Concomitant]
     Indication: RHEUMATOID ARTHRITIS
     Dosage: (THURSDAYS)
     Route: 048
  4. FOLIC ACID [Concomitant]
     Indication: POLYMEDICATION
     Route: 048
  5. MINOCYCLINE [Concomitant]
     Indication: RHEUMATOID ARTHRITIS
  6. ZETIA [Concomitant]
     Indication: BLOOD CHOLESTEROL
     Route: 048
  7. ZOLOFT [Concomitant]
     Indication: DEPRESSION
     Dosage: AT BEDTIME
     Route: 048
  8. KRILL OIL [Concomitant]
     Indication: PRODUCT USED FOR UNKNOWN INDICATION
     Route: 048
  9. FISH OIL OMEGA 3 [Concomitant]
     Indication: NUTRITIONAL SUPPLEMENTATION
     Dosage: DAILY
     Route: 048
  10. CINNAMON [Concomitant]
     Indication: ANTIINFLAMMATORY THERAPY
     Route: 048
  11. VITAMIN D3 [Concomitant]
     Indication: IMMUNE ENHANCEMENT THERAPY
     Route: 048
  12. BIOTIN [Concomitant]
     Indication: METABOLIC DISORDER
     Route: 048
  13. BIOTIN [Concomitant]
     Indication: HAIR DISORDER
  14. BIOTIN [Concomitant]
     Indication: SKIN DISORDER
  15. CALTRATE [Concomitant]
     Indication: OSTEOPOROSIS PROPHYLAXIS
     Route: 048
  16. ECOTRIN ASA COATED [Concomitant]
     Indication: CARDIOVASCULAR EVENT PROPHYLAXIS
     Route: 048
  17. HYALURONIC ACID [Concomitant]
     Indication: PROPHYLAXIS
     Route: 048
  18. HYALURONIC ACID [Concomitant]
     Indication: PROPHYLAXIS
  19. OLICEUTIC [Concomitant]
     Indication: PROPHYLAXIS
     Route: 048

REACTIONS (4)
  - Drug administration error [Not Recovered/Not Resolved]
  - Injection site haemorrhage [Not Recovered/Not Resolved]
  - Incorrect dose administered [Not Recovered/Not Resolved]
  - Injection site bruising [Not Recovered/Not Resolved]
